FAERS Safety Report 15741063 (Version 3)
Quarter: 2018Q4

REPORT INFORMATION
  Report Type: Spontaneous
  Country: US (occurrence: US)
  Receive Date: 20181219
  Receipt Date: 20181220
  Transmission Date: 20190205
  Serious: No
  Sender: FDA-Public Use
  Company Number: US-SA-2018SA344490

PATIENT
  Sex: Female

DRUGS (17)
  1. DUPIXENT [Suspect]
     Active Substance: DUPILUMAB
     Indication: DERMATITIS ATOPIC
     Dosage: 300 MG, QOW
     Route: 058
     Dates: start: 20180706
  2. EUCRISA [Concomitant]
     Active Substance: CRISABOROLE
  3. MELATONIN [Concomitant]
     Active Substance: MELATONIN
  4. FLUOCIN [FLUOCINOLONE ACETONIDE] [Concomitant]
  5. PROBIOTICS NOS [Concomitant]
     Active Substance: PROBIOTICS NOS
  6. CLOTRIMAZOLE. [Concomitant]
     Active Substance: CLOTRIMAZOLE
  7. EPIPEN [Concomitant]
     Active Substance: EPINEPHRINE
  8. ZYRTEC [Concomitant]
     Active Substance: CETIRIZINE HYDROCHLORIDE
  9. XOLAIR [Concomitant]
     Active Substance: OMALIZUMAB
  10. IRON [Concomitant]
     Active Substance: IRON
  11. FLUOXETINE [Concomitant]
     Active Substance: FLUOXETINE HYDROCHLORIDE
  12. BENADRYL [Concomitant]
     Active Substance: DIPHENHYDRAMINE HYDROCHLORIDE
  13. MULTIVITAMIN [VITAMINS NOS] [Concomitant]
  14. HYDROCORTISONE. [Concomitant]
     Active Substance: HYDROCORTISONE
  15. FLONASE [Concomitant]
     Active Substance: FLUTICASONE PROPIONATE
  16. VITAMIN D3 [Concomitant]
     Active Substance: CHOLECALCIFEROL
  17. MIDODRINE [Concomitant]
     Active Substance: MIDODRINE

REACTIONS (2)
  - Pain [Not Recovered/Not Resolved]
  - Sleep disorder [Not Recovered/Not Resolved]
